FAERS Safety Report 6853151-6 (Version None)
Quarter: 2010Q3

REPORT INFORMATION
  Report Type: 
  Country: None (occurrence: None)
  Receive Date: 20100717
  Receipt Date: 20071128
  Transmission Date: 20110219
  Serious: No
  Sender: FDA-Public Use
  Company Number: US-PFIZER INC-2007102604

PATIENT
  Sex: Female
  Weight: 56.4 kg

DRUGS (1)
  1. CHANTIX [Suspect]
     Indication: SMOKING CESSATION THERAPY
     Route: 048
     Dates: start: 20071101

REACTIONS (4)
  - BREAST DISORDER FEMALE [None]
  - FATIGUE [None]
  - FEELING ABNORMAL [None]
  - UNEVALUABLE EVENT [None]
